FAERS Safety Report 4362801-8 (Version None)
Quarter: 2004Q2

REPORT INFORMATION
  Report Type: 
  Country: None (occurrence: None)
  Receive Date: 20040518
  Receipt Date: 20040511
  Transmission Date: 20050107
  Serious: Yes (Death, Hospitalization)
  Sender: FDA-Public Use
  Company Number: US-SHR-03-018302

PATIENT
  Sex: Female

DRUGS (2)
  1. CAMPATH [Suspect]
     Indication: CHRONIC LYMPHOCYTIC LEUKAEMIA
     Dosage: 30 MG
     Dates: start: 20030501, end: 20031114
  2. ANALGESIC LIQ [Concomitant]

REACTIONS (5)
  - BRAIN STEM HAEMORRHAGE [None]
  - DEHYDRATION [None]
  - HEMIPLEGIA [None]
  - PARAPLEGIA [None]
  - PYREXIA [None]
